FAERS Safety Report 5797309-6 (Version None)
Quarter: 2008Q3

REPORT INFORMATION
  Report Type: 
  Country: None (occurrence: None)
  Receive Date: 20080701
  Receipt Date: 20080624
  Transmission Date: 20090109
  Serious: Yes (Other)
  Sender: FDA-Public Use
  Company Number: US-PFIZER INC-2008052653

PATIENT
  Sex: Female
  Weight: 50.3 kg

DRUGS (4)
  1. FLAGYL I.V. [Suspect]
     Indication: DIARRHOEA
     Route: 042
     Dates: start: 20080601, end: 20080601
  2. CIPROFLOXACIN [Interacting]
     Indication: DIARRHOEA
     Route: 042
     Dates: start: 20080601, end: 20080601
  3. SYNTHROID [Concomitant]
     Indication: THYROID CANCER
  4. PREDNISONE [Concomitant]

REACTIONS (9)
  - ASTHENIA [None]
  - DRUG INTERACTION [None]
  - FATIGUE [None]
  - HYPOAESTHESIA [None]
  - MYALGIA [None]
  - NEUROPATHY PERIPHERAL [None]
  - PSYCHOTIC DISORDER [None]
  - RECTAL HAEMORRHAGE [None]
  - WEIGHT DECREASED [None]
